FAERS Safety Report 6279545-8 (Version None)
Quarter: 2009Q3

REPORT INFORMATION
  Report Type: 
  Country: None (occurrence: None)
  Receive Date: 20090721
  Receipt Date: 20090717
  Transmission Date: 20100115
  Serious: Yes (Life-Threatening, Hospitalization)
  Sender: FDA-Public Use
  Company Number: GXKR2009DE07776

PATIENT
  Sex: Male
  Weight: 110 kg

DRUGS (3)
  1. VERAHEXAL (NGX) (VERAPAMIL) UNKNOWN, 120MG [Suspect]
     Indication: ANGINA PECTORIS
     Dosage: 120 MG, ORAL
     Route: 048
  2. IBU ^RATIOPHARM^ (IBUPROFEN) 400 MG [Suspect]
     Indication: PAIN
     Dosage: 400 MG, PRN, ORAL
     Route: 048
  3. ENALAPRIL MALEATE [Concomitant]

REACTIONS (8)
  - ANAEMIA [None]
  - BLOOD CREATINE PHOSPHOKINASE INCREASED [None]
  - DIARRHOEA [None]
  - FATIGUE [None]
  - LOSS OF CONSCIOUSNESS [None]
  - MELAENA [None]
  - MUSCULAR WEAKNESS [None]
  - MYALGIA [None]
